FAERS Safety Report 11164503 (Version 1)
Quarter: 2015Q2

REPORT INFORMATION
  Report Type: Spontaneous
  Country: US (occurrence: None)
  Receive Date: 20150603
  Receipt Date: 20150603
  Transmission Date: 20150821
  Serious: No
  Sender: FDA-Public Use
  Company Number: None

PATIENT
  Age: 49 Year
  Sex: Male
  Weight: 89.1 kg

DRUGS (1)
  1. BACLOFEN. [Suspect]
     Active Substance: BACLOFEN
     Indication: MUSCLE SPASMS
     Route: 048
     Dates: start: 20130201, end: 20130202

REACTIONS (7)
  - Grip strength decreased [None]
  - Hypoaesthesia [None]
  - Wrist deformity [None]
  - Hypoacusis [None]
  - Eustachian tube dysfunction [None]
  - Peripheral swelling [None]
  - Swelling [None]

NARRATIVE: CASE EVENT DATE: 20130204
